FAERS Safety Report 20637912 (Version 1)
Quarter: 2022Q1

REPORT INFORMATION
  Report Type: Spontaneous
  Country: CN (occurrence: None)
  Receive Date: 20220325
  Receipt Date: 20220325
  Transmission Date: 20220423
  Serious: Yes (Other)
  Sender: FDA-Public Use
  Company Number: 2022A122889

PATIENT
  Age: 73 Year
  Sex: Female
  Weight: 50 kg

DRUGS (2)
  1. BUDESONIDE [Suspect]
     Active Substance: BUDESONIDE
     Indication: Asthma
     Route: 055
     Dates: start: 20220306, end: 20220309
  2. TERBUTALINE [Suspect]
     Active Substance: TERBUTALINE
     Indication: Asthma
     Route: 055
     Dates: start: 20220306, end: 20220309

REACTIONS (2)
  - Asphyxia [Recovered/Resolved]
  - Asthma [Recovered/Resolved]

NARRATIVE: CASE EVENT DATE: 20220309
